FAERS Safety Report 17269528 (Version 1)
Quarter: 2020Q1

REPORT INFORMATION
  Report Type: Spontaneous
  Country: US (occurrence: US)
  Receive Date: 20200114
  Receipt Date: 20200114
  Transmission Date: 20200409
  Serious: No
  Sender: FDA-Public Use
  Company Number: US-LANNETT COMPANY, INC.-US-2019LAN001084

PATIENT
  Sex: Female

DRUGS (1)
  1. URSODIOL. [Suspect]
     Active Substance: URSODIOL
     Indication: PRIMARY BILIARY CHOLANGITIS
     Dosage: 300 MG, BID
     Route: 048
     Dates: start: 2019

REACTIONS (2)
  - Hepatic enzyme increased [Unknown]
  - Product use in unapproved indication [Unknown]
